FAERS Safety Report 24297715 (Version 2)
Quarter: 2024Q3

REPORT INFORMATION
  Report Type: Spontaneous
  Country: ES (occurrence: ES)
  Receive Date: 20240909
  Receipt Date: 20240918
  Transmission Date: 20241016
  Serious: Yes (Hospitalization, Other)
  Sender: MYLAN
  Company Number: ES-CHEPLA-2024010807

PATIENT
  Age: 26 Year
  Sex: Male

DRUGS (20)
  1. FENTANYL [Suspect]
     Active Substance: FENTANYL\FENTANYL CITRATE
     Indication: Product used for unknown indication
     Dosage: 100 MICROGRAM
     Route: 065
  2. REMIFENTANIL [Suspect]
     Active Substance: REMIFENTANIL
     Indication: General anaesthesia
     Dosage: (0.05-0.15 MCG/KG/MIN)
     Route: 065
  3. MIDAZOLAM [Suspect]
     Active Substance: MIDAZOLAM
     Indication: Anaesthetic premedication
     Dosage: 1 MILLIGRAM
     Route: 042
  4. ETOMIDATE [Suspect]
     Active Substance: ETOMIDATE
     Indication: Product used for unknown indication
     Dosage: 16 MILLIGRAM
     Route: 065
  5. HYDROCORTISONE [Suspect]
     Active Substance: HYDROCORTISONE\HYDROCORTISONE ACETATE
     Indication: Anaesthetic premedication
     Dosage: 240 MILLIGRAM
     Route: 042
  6. AMIODARONE [Suspect]
     Active Substance: AMIODARONE
     Indication: Product used for unknown indication
     Dosage: UNK
     Route: 065
  7. PROPOFOL [Suspect]
     Active Substance: PROPOFOL
     Indication: General anaesthesia
     Dosage: (6-8 MG/KG/H)
     Route: 065
  8. PREDNISONE [Suspect]
     Active Substance: PREDNISONE
     Indication: Atrial fibrillation
     Dosage: 60 MILLIGRAM, QD
     Route: 065
  9. PREDNISONE [Suspect]
     Active Substance: PREDNISONE
     Indication: Cardiac failure
  10. ROCURONIUM [Suspect]
     Active Substance: ROCURONIUM BROMIDE
     Indication: Product used for unknown indication
     Dosage: 30 MILLIGRAM
     Route: 065
  11. PANTOPRAZOLE [Suspect]
     Active Substance: PANTOPRAZOLE
     Indication: Anaesthetic premedication
     Dosage: 40 MILLIGRAM
     Route: 042
  12. METHIMAZOLE [Suspect]
     Active Substance: METHIMAZOLE
     Indication: Cardiac failure
     Dosage: 15 MILLIGRAM, Q8H, 15MG/HR
     Route: 065
  13. METHIMAZOLE [Suspect]
     Active Substance: METHIMAZOLE
     Indication: Atrial fibrillation
  14. METHIMAZOLE [Concomitant]
     Active Substance: METHIMAZOLE
     Indication: Hyperthyroidism
     Dosage: 30 MILLIGRAM
     Route: 065
  15. METHIMAZOLE [Concomitant]
     Active Substance: METHIMAZOLE
     Dosage: 30 MILLIGRAM, Q6H
     Route: 065
  16. DIGOXIN [Concomitant]
     Active Substance: DIGOXIN
     Dosage: 1 MILLIGRAM, QD
     Route: 065
  17. LUGOL [Concomitant]
     Active Substance: IODINE\POTASSIUM IODIDE
     Indication: Hyperthyroidism
     Dosage: 5 GTT DROPS, Q6H, 5% 5 DROPS/6 H
     Route: 065
  18. PROPYLTHIOURACIL [Concomitant]
     Active Substance: PROPYLTHIOURACIL
     Indication: Hyperthyroidism
     Dosage: 150 MILLIGRAM, Q8H
     Route: 065
  19. PROPYLTHIOURACIL [Concomitant]
     Active Substance: PROPYLTHIOURACIL
     Dosage: 250 MILLIGRAM, Q6H
     Route: 065
  20. PROPRANOLOL [Concomitant]
     Active Substance: PROPRANOLOL HYDROCHLORIDE
     Dosage: 0.1 MILLIGRAM/KILOGRAM
     Route: 065

REACTIONS (4)
  - Thyrotoxic crisis [Unknown]
  - Hyperthyroidism [Unknown]
  - Drug ineffective [Unknown]
  - Off label use [Unknown]

NARRATIVE: CASE EVENT DATE: 20180101
